FAERS Safety Report 5324170-6 (Version None)
Quarter: 2007Q2

REPORT INFORMATION
  Report Type: 
  Country: None (occurrence: None)
  Receive Date: 20070504
  Receipt Date: 20070426
  Transmission Date: 20071010
  Serious: Yes (Other)
  Sender: FDA-Public Use
  Company Number: GXKR2007GB03850

PATIENT
  Age: 73 Year
  Sex: Male
  Weight: 61.2 kg

DRUGS (5)
  1. FLUOXETINE [Suspect]
     Indication: DEPRESSION
     Dosage: 40 MG, ORAL
     Route: 048
     Dates: start: 20050511, end: 20050519
  2. ADCAL-D3 (CALCIUM CARBONATE, COLECALCIFEROL) [Concomitant]
  3. ASPIRIN [Concomitant]
  4. SENNA (SENNA, SENNA ALEXANDRINA) [Concomitant]
  5. VALPROATE SODIUM [Concomitant]

REACTIONS (4)
  - CHOREA [None]
  - DEMENTIA [None]
  - HYPERNATRAEMIA [None]
  - SUBARACHNOID HAEMORRHAGE [None]
